FAERS Safety Report 19602977 (Version 1)
Quarter: 2021Q3

REPORT INFORMATION
  Report Type: Spontaneous
  Country: CN (occurrence: CN)
  Receive Date: 20210724
  Receipt Date: 20210724
  Transmission Date: 20211014
  Serious: Yes (Hospitalization)
  Sender: FDA-Public Use
  Company Number: CN-ROCHE-2874740

PATIENT
  Age: 52 Year
  Sex: Female
  Weight: 50 kg

DRUGS (4)
  1. THIOTEPA. [Suspect]
     Active Substance: THIOTEPA
     Dosage: 1?2 TIMES PER WEEK
     Route: 034
     Dates: start: 20210330
  2. THIOTEPA. [Suspect]
     Active Substance: THIOTEPA
     Indication: OVARIAN CANCER
     Dosage: 1?2 TIMES PER WEEK
     Route: 034
     Dates: start: 20210324
  3. AVASTIN [Suspect]
     Active Substance: BEVACIZUMAB
     Indication: OVARIAN CANCER
     Route: 041
     Dates: start: 20210326
  4. CARBOPLATIN. [Suspect]
     Active Substance: CARBOPLATIN
     Indication: OVARIAN CANCER
     Route: 033
     Dates: start: 20210326

REACTIONS (2)
  - Myelosuppression [Unknown]
  - Off label use [Unknown]

NARRATIVE: CASE EVENT DATE: 20210412
